FAERS Safety Report 5522378-8 (Version None)
Quarter: 2007Q4

REPORT INFORMATION
  Report Type: 
  Country: None (occurrence: None)
  Receive Date: 20071120
  Receipt Date: 20071108
  Transmission Date: 20080405
  Serious: Yes (Hospitalization)
  Sender: FDA-Public Use
  Company Number: US-PFIZER INC-2007090824

PATIENT
  Sex: Male
  Weight: 63.2 kg

DRUGS (12)
  1. EXUBERA [Suspect]
     Indication: TYPE 1 DIABETES MELLITUS
     Dosage: DAILY DOSE:12MG
     Route: 055
     Dates: start: 20061226, end: 20071015
  2. EXUBERA [Suspect]
     Indication: TYPE 2 DIABETES MELLITUS
  3. LANTUS [Concomitant]
  4. CARVEDILOL [Concomitant]
     Route: 048
  5. FELODIPINE [Concomitant]
     Route: 048
     Dates: start: 20040101
  6. DIGOXIN [Concomitant]
     Route: 048
     Dates: start: 20040701
  7. LISINOPRIL [Concomitant]
     Route: 048
     Dates: start: 20060701
  8. TERAZOSIN HCL [Concomitant]
     Route: 048
     Dates: start: 20020101
  9. ACETYLSALICYLIC ACID SRT [Concomitant]
     Route: 048
     Dates: start: 20050101
  10. ATORVASTATIN CALCIUM [Concomitant]
     Route: 048
     Dates: start: 20060701
  11. COLCHICINE [Concomitant]
     Route: 048
     Dates: start: 20020101
  12. VITAMIN CAP [Concomitant]
     Route: 048
     Dates: start: 20061101

REACTIONS (1)
  - OESOPHAGEAL OEDEMA [None]
